FAERS Safety Report 14848560 (Version 1)
Quarter: 2018Q2

REPORT INFORMATION
  Report Type: Spontaneous
  Country: SA (occurrence: SA)
  Receive Date: 20180504
  Receipt Date: 20180504
  Transmission Date: 20180711
  Serious: Yes (Death, Life-Threatening, Other)
  Sender: FDA-Public Use
  Company Number: SA-TEVA-2018-SA-887281

PATIENT
  Age: 66 Year
  Sex: Female

DRUGS (3)
  1. RIBOMUSTIN [Suspect]
     Active Substance: BENDAMUSTINE HYDROCHLORIDE
     Indication: SPLENIC MARGINAL ZONE LYMPHOMA
     Dosage: (1 CYCLE)
     Route: 042
     Dates: start: 201803
  2. RITUXIMAB. [Suspect]
     Active Substance: RITUXIMAB
     Indication: SPLENIC MARGINAL ZONE LYMPHOMA
     Route: 065
     Dates: start: 2016, end: 201710
  3. RITUXIMAB. [Suspect]
     Active Substance: RITUXIMAB
     Route: 065
     Dates: start: 201803

REACTIONS (5)
  - Cytopenia [Unknown]
  - Death [Fatal]
  - Acute kidney injury [Unknown]
  - Pneumonia [Unknown]
  - Tumour lysis syndrome [Unknown]
